FAERS Safety Report 21858864 (Version 1)
Quarter: 2023Q1

REPORT INFORMATION
  Report Type: Spontaneous
  Country: FR (occurrence: FR)
  Receive Date: 20230113
  Receipt Date: 20230113
  Transmission Date: 20230417
  Serious: Yes (Hospitalization)
  Sender: FDA-Public Use
  Company Number: FR-SA-SAC20230110001184

PATIENT
  Age: 67 Year
  Sex: Male
  Weight: 90 kg

DRUGS (10)
  1. CERDELGA [Suspect]
     Active Substance: ELIGLUSTAT
     Dosage: 84 MG, BID (1 TABLET AT 9 H AND 1 TABLET AT 21 H)
     Route: 048
     Dates: start: 20160314
  2. DAFALGAN CODEINE [Concomitant]
     Active Substance: ACETAMINOPHEN\CODEINE PHOSPHATE
     Indication: Abdominal pain
  3. ENALAPRIL [Concomitant]
     Active Substance: ENALAPRIL
     Dosage: 1 DF, QD (20/12.5 MG)
  4. DORZOLAMIDE HYDROCHLORIDE\TIMOLOL MALEATE [Concomitant]
     Active Substance: DORZOLAMIDE HYDROCHLORIDE\TIMOLOL MALEATE
     Dosage: 20 MG/ML + 5 MG/ML, 1 OG/LEFT EYE DROP MORNING
  5. RACECADOTRIL [Concomitant]
     Active Substance: RACECADOTRIL
     Dosage: 1 DF
  6. PRAZEPAM [Concomitant]
     Active Substance: PRAZEPAM
     Dosage: 10 MG AT NIGHT
  7. LATANOPROST [Concomitant]
     Active Substance: LATANOPROST
  8. HYALURONATE SODIUM\TREHALOSE [Concomitant]
     Active Substance: HYALURONATE SODIUM\TREHALOSE
  9. CHOLECALCIFEROL [Concomitant]
     Active Substance: CHOLECALCIFEROL
     Dosage: 50000 U, Q2M
  10. ACETYLLEUCINE, L- [Concomitant]
     Active Substance: ACETYLLEUCINE, L-
     Dosage: 1 DF

REACTIONS (11)
  - Monoclonal gammopathy [Unknown]
  - Gait disturbance [Unknown]
  - Cutaneous symptom [Unknown]
  - Vertigo [Unknown]
  - Rash [Unknown]
  - Fall [Unknown]
  - Anti-glycyl-tRNA synthetase antibody positive [Unknown]
  - Blood urea increased [Unknown]
  - Glomerular filtration rate increased [Unknown]
  - Immunoglobulins increased [Unknown]
  - Dizziness [Unknown]

NARRATIVE: CASE EVENT DATE: 20220101
